FAERS Safety Report 4907373-1 (Version None)
Quarter: 2006Q1

REPORT INFORMATION
  Report Type: 
  Country: None (occurrence: None)
  Receive Date: 20060208
  Receipt Date: 20060208
  Transmission Date: 20060701
  Serious: Yes (Hospitalization)
  Sender: FDA-Public Use
  Company Number: None

PATIENT
  Age: 51 Year
  Sex: Male

DRUGS (13)
  1. FLUOXETINE [Suspect]
     Dosage: 20 MG PO QD
     Route: 048
     Dates: start: 20021226, end: 20051211
  2. HYDROCHLOROTHIAZIDE [Suspect]
     Dosage: 12.5 MG PO QD
     Route: 048
     Dates: start: 20040723, end: 20051211
  3. ACYCLOVIR SODIUM [Concomitant]
  4. AQUAPHOR OINT [Concomitant]
  5. DIAZEPAM [Concomitant]
  6. FLUOXETINE HCL [Concomitant]
  7. HYDROCHLOROTHIAZIDE [Concomitant]
  8. LISINOPRIL [Concomitant]
  9. MAGNESIUM GLUCONATE [Concomitant]
  10. NAPROXEN [Concomitant]
  11. OMEPRAZOLE [Concomitant]
  12. POTASSIUM CHLORIDE [Concomitant]
  13. TRAMADOL HCL [Concomitant]

REACTIONS (1)
  - HYPONATRAEMIA [None]
